FAERS Safety Report 7630174-0 (Version None)
Quarter: 2011Q3

REPORT INFORMATION
  Report Type: 
  Country: None (occurrence: None)
  Receive Date: 20110722
  Receipt Date: 20110708
  Transmission Date: 20111222
  Serious: Yes (Other)
  Sender: FDA-Public Use
  Company Number: PHHY2011BR61491

PATIENT
  Sex: Female

DRUGS (3)
  1. COZAAR [Concomitant]
  2. DIOVAN [Suspect]
     Dosage: 80 MG, UNK
  3. DIOVAN [Suspect]
     Dosage: 160 MG, UNK

REACTIONS (1)
  - CATARACT [None]
